FAERS Safety Report 7375548-0 (Version None)
Quarter: 2011Q1

REPORT INFORMATION
  Report Type: 
  Country: None (occurrence: None)
  Receive Date: 20110325
  Receipt Date: 20110318
  Transmission Date: 20110831
  Serious: Yes (Other)
  Sender: FDA-Public Use
  Company Number: US-BAYER-2011-024393

PATIENT
  Sex: Female

DRUGS (1)
  1. YASMIN [Suspect]
     Indication: PRODUCT USED FOR UNKNOWN INDICATION
     Dosage: UNK
     Route: 048
     Dates: start: 20060501, end: 20070201

REACTIONS (14)
  - BLINDNESS [None]
  - CONVULSION [None]
  - CONFUSIONAL STATE [None]
  - CEREBROVASCULAR ACCIDENT [None]
  - FALL [None]
  - HEADACHE [None]
  - CONTUSION [None]
  - MUSCLE SPASTICITY [None]
  - AMNESIA [None]
  - DEPRESSION [None]
  - SUICIDAL IDEATION [None]
  - HAEMATOMA [None]
  - DIZZINESS [None]
  - SWELLING [None]
